FAERS Safety Report 8304202-3 (Version None)
Quarter: 2012Q2

REPORT INFORMATION
  Report Type: 
  Country: None (occurrence: None)
  Receive Date: 20120423
  Receipt Date: 20120410
  Transmission Date: 20120825
  Serious: Yes (Other)
  Sender: FDA-Public Use
  Company Number: FR-UCBSA-055092

PATIENT
  Age: 28 Year
  Sex: Female

DRUGS (1)
  1. CIMZIA [Suspect]
     Indication: RHEUMATOID ARTHRITIS
     Dosage: ONE UNIT EVERY 2 WEEKS
     Route: 058
     Dates: start: 20111021, end: 20111216

REACTIONS (3)
  - RHEUMATOID ARTHRITIS [None]
  - HEADACHE [None]
  - URTICARIA [None]
